FAERS Safety Report 8147604-0 (Version None)
Quarter: 2012Q1

REPORT INFORMATION
  Report Type: 
  Country: None (occurrence: None)
  Receive Date: 20120218
  Receipt Date: 20120208
  Transmission Date: 20120608
  Serious: Yes (Other)
  Sender: FDA-Public Use
  Company Number: US-ACCORD-012385

PATIENT
  Age: 19 Year

DRUGS (2)
  1. DOCETAXEL [Suspect]
     Indication: RHABDOMYOSARCOMA
     Dosage: 2 CYCLES. INFUSED OVER 60 MINUTES ON DAY 8. CYCLES WERE REPEATED EVERY 21 DAYS.
     Route: 042
  2. GEMCITABINE [Suspect]
     Indication: RHABDOMYOSARCOMA
     Dosage: 2 CYCLES. INFUSED OVER 90 MINUTES ON DAYS 1 AND 8. CYCLES WERE REPEATED EVERY 21 DAYS.
     Route: 042

REACTIONS (5)
  - BLOOD CREATININE INCREASED [None]
  - HYPERCALCAEMIA [None]
  - OFF LABEL USE [None]
  - RHABDOMYOSARCOMA [None]
  - NEOPLASM PROGRESSION [None]
